FAERS Safety Report 17862059 (Version 9)
Quarter: 2021Q3

REPORT INFORMATION
  Report Type: Report from Study
  Country: US (occurrence: US)
  Receive Date: 20200604
  Receipt Date: 20210921
  Transmission Date: 20211014
  Serious: Yes (Other)
  Sender: FDA-Public Use
  Company Number: US-SHIRE-US202018022

PATIENT
  Sex: Female
  Weight: 56 kg

DRUGS (13)
  1. ALBUTEROL. [Concomitant]
     Active Substance: ALBUTEROL
     Route: 065
  2. ACETAMINOPHEN. [Concomitant]
     Active Substance: ACETAMINOPHEN
  3. PULMICORT TURBUHALER [Concomitant]
     Active Substance: BUDESONIDE
     Route: 065
  4. EPINEPHRINE. [Concomitant]
     Active Substance: EPINEPHRINE
  5. ESTRIOL [Concomitant]
     Active Substance: ESTRIOL
  6. CUVITRU [Suspect]
     Active Substance: HUMAN IMMUNOGLOBULIN G
     Dosage: 6 GRAM, 1/WEEK
     Route: 058
     Dates: start: 20200420
  7. FIORINAL [ACETYLSALICYLIC ACID;CAFFEINE;PARACETAMOL] [Concomitant]
     Active Substance: ACETAMINOPHEN\ASPIRIN\CAFFEINE
     Route: 065
  8. BREO ELLIPTA [Concomitant]
     Active Substance: FLUTICASONE FUROATE\VILANTEROL TRIFENATATE
     Route: 065
  9. CUVITRU [Suspect]
     Active Substance: HUMAN IMMUNOGLOBULIN G
     Indication: IMMUNODEFICIENCY COMMON VARIABLE
     Dosage: 6 GRAM,1/WEEK
     Route: 058
     Dates: start: 20200413
  10. ATROVENT [Concomitant]
     Active Substance: IPRATROPIUM BROMIDE
  11. ALVESCO [Concomitant]
     Active Substance: CICLESONIDE
     Route: 065
  12. CETIRIZINE HYDROCHLORIDE. [Concomitant]
     Active Substance: CETIRIZINE HYDROCHLORIDE
  13. ALBUTEROL SULFATE. [Concomitant]
     Active Substance: ALBUTEROL SULFATE

REACTIONS (16)
  - Temporomandibular joint syndrome [Unknown]
  - Injection site swelling [Unknown]
  - Thrombosis [Unknown]
  - Infusion site erythema [Unknown]
  - Sinusitis [Unknown]
  - Fat tissue increased [Unknown]
  - Injection site inflammation [Unknown]
  - Infusion site bruising [Unknown]
  - Infusion related reaction [Unknown]
  - Infusion site irritation [Unknown]
  - Infusion site discomfort [Unknown]
  - Incorrect drug administration rate [Unknown]
  - Injection site warmth [Unknown]
  - Weight decreased [Unknown]
  - Nasopharyngitis [Unknown]
  - Injection site pain [Unknown]
